FAERS Safety Report 6728012-3 (Version None)
Quarter: 2010Q2

REPORT INFORMATION
  Report Type: 
  Country: None (occurrence: None)
  Receive Date: 20100517
  Receipt Date: 20100507
  Transmission Date: 20101027
  Serious: Yes (Life-Threatening, Hospitalization, Other)
  Sender: FDA-Public Use
  Company Number: ZA-ABBOTT-10P-143-0631873-00

PATIENT
  Sex: Male

DRUGS (1)
  1. HUMIRA [Suspect]
     Indication: CROHN'S DISEASE
     Route: 058

REACTIONS (6)
  - COUGH [None]
  - DYSPNOEA [None]
  - LOBAR PNEUMONIA [None]
  - LUNG INFILTRATION [None]
  - TUBERCULOSIS [None]
  - WEIGHT DECREASED [None]
